FAERS Safety Report 12598355 (Version 6)
Quarter: 2016Q4

REPORT INFORMATION
  Report Type: Report from Study
  Country: US (occurrence: US)
  Receive Date: 20160726
  Receipt Date: 20161103
  Transmission Date: 20170207
  Serious: Yes (Other)
  Sender: FDA-Public Use
  Company Number: US-GILEAD-2016-0216925

PATIENT
  Age: 80 Year
  Sex: Female
  Weight: 64.85 kg

DRUGS (15)
  1. IDELALISIB [Suspect]
     Active Substance: IDELALISIB
     Indication: B-CELL LYMPHOMA
     Dosage: 150 MG, BID
     Route: 048
     Dates: start: 20160530, end: 20160715
  2. CITALOPRAM [Concomitant]
     Active Substance: CITALOPRAM HYDROBROMIDE
  3. COMPAZINE                          /00013302/ [Concomitant]
     Active Substance: PROCHLORPERAZINE EDISYLATE
  4. VITAMIN E                          /00110501/ [Concomitant]
     Active Substance: TOCOPHEROL
  5. DECADRON [Concomitant]
     Active Substance: DEXAMETHASONE
  6. IDELALISIB [Suspect]
     Active Substance: IDELALISIB
     Dosage: 150 MG, BID
     Route: 048
     Dates: start: 20160811
  7. ALPRAZOLAM. [Concomitant]
     Active Substance: ALPRAZOLAM
  8. CHOLECALCIFEROL [Concomitant]
     Active Substance: CHOLECALCIFEROL
  9. MULTIVITAMIN                       /00097801/ [Concomitant]
     Active Substance: VITAMINS
  10. BENDAMUSTINE [Concomitant]
     Active Substance: BENDAMUSTINE
  11. ONDANSETRON [Concomitant]
     Active Substance: ONDANSETRON
  12. SODIUM CHLORIDE. [Concomitant]
     Active Substance: SODIUM CHLORIDE
  13. ZOLPIDEM [Concomitant]
     Active Substance: ZOLPIDEM\ZOLPIDEM TARTRATE
  14. LUTEIN-ZEAXANTHIN [Concomitant]
  15. PROPRANOLOL [Concomitant]
     Active Substance: PROPRANOLOL\PROPRANOLOL HYDROCHLORIDE

REACTIONS (20)
  - Vomiting [Unknown]
  - Peripheral swelling [Not Recovered/Not Resolved]
  - Hypoaesthesia [Not Recovered/Not Resolved]
  - Increased tendency to bruise [Unknown]
  - Malaise [Unknown]
  - Depression [Unknown]
  - Fatigue [Not Recovered/Not Resolved]
  - Abdominal pain upper [Not Recovered/Not Resolved]
  - Visual acuity reduced [Unknown]
  - Fall [Unknown]
  - Nausea [Not Recovered/Not Resolved]
  - Hyperaesthesia [Unknown]
  - Pain [Recovering/Resolving]
  - Back pain [Unknown]
  - Scapula fracture [Unknown]
  - Pollakiuria [Unknown]
  - Herpes zoster [Unknown]
  - Stomatitis [Unknown]
  - Sleep disorder [Unknown]
  - Memory impairment [Unknown]

NARRATIVE: CASE EVENT DATE: 20160718
